FAERS Safety Report 23381780 (Version 1)
Quarter: 2024Q1

REPORT INFORMATION
  Report Type: Spontaneous
  Country: US (occurrence: US)
  Receive Date: 20240109
  Receipt Date: 20240109
  Transmission Date: 20240409
  Serious: Yes (Death, Other)
  Sender: FDA-Public Use
  Company Number: US-ADVANZ PHARMA-202312012242

PATIENT

DRUGS (4)
  1. HYDROXYCHLOROQUINE [Suspect]
     Active Substance: HYDROXYCHLOROQUINE
     Dosage: UNK (INGESTION)
     Route: 048
  2. TRAZODONE [Suspect]
     Active Substance: TRAZODONE HYDROCHLORIDE
     Dosage: UNK (INGESTION)
     Route: 048
  3. METFORMIN [Suspect]
     Active Substance: METFORMIN HYDROCHLORIDE
     Dosage: UNK (INGESTION)
     Route: 048
  4. ALCOHOL [Suspect]
     Active Substance: ALCOHOL
     Dosage: UNK (BEVERAGE, INGESTION)
     Route: 048

REACTIONS (1)
  - Completed suicide [Fatal]
